FAERS Safety Report 9142976 (Version 3)
Quarter: 2013Q2

REPORT INFORMATION
  Report Type: Spontaneous
  Country: US (occurrence: US)
  Receive Date: 20130306
  Receipt Date: 20130424
  Transmission Date: 20140414
  Serious: Yes (Death)
  Sender: FDA-Public Use
  Company Number: US-PFIZER INC-2013074823

PATIENT
  Age: 64 Year
  Sex: Female

DRUGS (2)
  1. CAMPTOSAR [Suspect]
     Indication: COLON CANCER
     Dosage: 324 MG, EVERY 2 WEEKS
     Route: 042
     Dates: start: 20111220
  2. ERBITUX [Suspect]
     Indication: COLON CANCER
     Dosage: UNK
     Dates: start: 20111220

REACTIONS (2)
  - Disease progression [Fatal]
  - Colon cancer [Fatal]
